FAERS Safety Report 7756994-X (Version None)
Quarter: 2011Q3

REPORT INFORMATION
  Report Type: 
  Country: None (occurrence: None)
  Receive Date: 20110916
  Receipt Date: 20110916
  Transmission Date: 20111222
  Serious: No
  Sender: FDA-Public Use
  Company Number: None

PATIENT
  Age: 60 Year
  Sex: Male
  Weight: 950.27 kg

DRUGS (1)
  1. OXYCODONE HCL [Suspect]
     Indication: PAIN
     Dosage: 15MG
     Route: 048
     Dates: start: 20110804, end: 20110815

REACTIONS (2)
  - PRODUCT SUBSTITUTION ISSUE [None]
  - INADEQUATE ANALGESIA [None]
